FAERS Safety Report 6980350-5 (Version None)
Quarter: 2010Q3

REPORT INFORMATION
  Report Type: 
  Country: None (occurrence: None)
  Receive Date: 20100914
  Receipt Date: 20100907
  Transmission Date: 20110219
  Serious: Yes (Other)
  Sender: FDA-Public Use
  Company Number: JP-BAYER-201012831BYL

PATIENT
  Age: 51 Year
  Sex: Male
  Weight: 68 kg

DRUGS (11)
  1. NEXAVAR [Suspect]
     Indication: HEPATIC NEOPLASM MALIGNANT
     Dosage: TOTAL DAILY DOSE: 800 MG  UNIT DOSE: 200 MG
     Route: 048
     Dates: start: 20100510, end: 20100520
  2. THEO-DUR [Suspect]
     Indication: COUGH
     Dosage: UNIT DOSE: 200 MG
     Route: 048
     Dates: start: 20100510, end: 20100607
  3. CONIEL [Suspect]
     Indication: HYPERTENSION
     Dosage: UNIT DOSE: 2 MG
     Route: 048
     Dates: start: 20100517, end: 20100607
  4. LOXONIN [Concomitant]
     Indication: PAIN
     Dosage: UNIT DOSE: 60 MG
     Route: 048
     Dates: start: 20071209
  5. MUCOSTA [Concomitant]
     Indication: PAIN
     Dosage: UNIT DOSE: 100 MG
     Route: 048
     Dates: start: 20071209
  6. LAC-B [Concomitant]
     Indication: DIARRHOEA
     Route: 048
     Dates: start: 20100510, end: 20100524
  7. ASTOMIN [Concomitant]
     Indication: COUGH
     Dosage: UNIT DOSE: 10 MG
     Route: 048
     Dates: start: 20100401
  8. BARACLUDE [Concomitant]
     Indication: HEPATITIS B
     Dosage: UNIT DOSE: 0.5 MG
     Route: 048
     Dates: start: 20071219
  9. OMEPRAL [Concomitant]
     Indication: PROPHYLAXIS AGAINST GASTROINTESTINAL ULCER
     Dosage: UNIT DOSE: 20 MG
     Route: 048
     Dates: start: 20080112
  10. ALLEGRA [Concomitant]
     Indication: PRURITUS
     Dosage: UNIT DOSE: 30 MG
     Route: 048
     Dates: start: 20080625
  11. LENDORMIN [Concomitant]
     Indication: INSOMNIA
     Dosage: UNIT DOSE: 0.25 MG
     Route: 048
     Dates: start: 20080122

REACTIONS (2)
  - HEPATIC FUNCTION ABNORMAL [None]
  - INTERSTITIAL LUNG DISEASE [None]
